FAERS Safety Report 5922024-5 (Version None)
Quarter: 2008Q3

REPORT INFORMATION
  Report Type: 
  Country: None (occurrence: None)
  Receive Date: 20080909
  Receipt Date: 20080617
  Transmission Date: 20090109
  Serious: Yes (Death)
  Sender: FDA-Public Use
  Company Number: 163-20785-08061097

PATIENT
  Age: 69 Year
  Sex: Female
  Weight: 56.4 kg

DRUGS (5)
  1. THALOMID [Suspect]
     Indication: GLIOBLASTOMA MULTIFORME
     Dosage: 200 MG, ORAL ; 200MG QD ESCALATING WEEKLY BY 100MG UNTIL MAX DOSE OF 400MG, ORAL
     Route: 048
     Dates: start: 20080204, end: 20080204
  2. THALOMID [Suspect]
     Indication: GLIOBLASTOMA MULTIFORME
     Dosage: 200 MG, ORAL ; 200MG QD ESCALATING WEEKLY BY 100MG UNTIL MAX DOSE OF 400MG, ORAL
     Route: 048
     Dates: start: 20071101
  3. TEMOZOLOMIDE [Suspect]
     Indication: GLIOBLASTOMA MULTIFORME
     Dosage: 230 MG, QHS, ORAL ; 230 MG, QHS X7 DAYS WITH 7 DAYS OFF, ORAL
     Route: 048
     Dates: start: 20080204, end: 20080204
  4. TEMOZOLOMIDE [Suspect]
     Indication: GLIOBLASTOMA MULTIFORME
     Dosage: 230 MG, QHS, ORAL ; 230 MG, QHS X7 DAYS WITH 7 DAYS OFF, ORAL
     Route: 048
     Dates: start: 20071101
  5. COUMADIN [Concomitant]

REACTIONS (1)
  - DEATH [None]
